FAERS Safety Report 5613727-0 (Version None)
Quarter: 2008Q1

REPORT INFORMATION
  Report Type: 
  Country: None (occurrence: None)
  Receive Date: 20080130
  Receipt Date: 20080122
  Transmission Date: 20080703
  Serious: Yes (Hospitalization)
  Sender: FDA-Public Use
  Company Number: 05-NIP00075

PATIENT
  Age: 56 Year
  Sex: Male
  Weight: 90 kg

DRUGS (4)
  1. NIPENT [Suspect]
     Indication: CHRONIC LYMPHOCYTIC LEUKAEMIA
     Dosage: 8.2 MG IV
     Route: 042
     Dates: start: 20050606, end: 20050718
  2. CYCLOPHOSPHAMIDE [Suspect]
     Indication: CHRONIC LYMPHOCYTIC LEUKAEMIA
     Dosage: 1224 MG IV
     Route: 042
     Dates: start: 20050606, end: 20050718
  3. RITUXIMAB [Suspect]
     Indication: CHRONIC LYMPHOCYTIC LEUKAEMIA
     Dosage: 765 MG IV
     Route: 042
     Dates: start: 20050606, end: 20050718
  4. BACTRIM [Concomitant]

REACTIONS (2)
  - INFECTION [None]
  - LYMPHOPENIA [None]
